FAERS Safety Report 5148621-5 (Version None)
Quarter: 2006Q4

REPORT INFORMATION
  Report Type: 
  Country: None (occurrence: None)
  Receive Date: 20061107
  Receipt Date: 20061019
  Transmission Date: 20070319
  Serious: Yes (Hospitalization)
  Sender: FDA-Public Use
  Company Number: 2006SP004474

PATIENT
  Age: 67 Year
  Sex: Female

DRUGS (3)
  1. TEMODAL [Suspect]
     Indication: MALIGNANT MELANOMA
     Dates: start: 20060515, end: 20060703
  2. MUPHORAN (FOTEMUSTINE) [Suspect]
     Indication: MALIGNANT MELANOMA
     Dates: start: 20060710, end: 20060725
  3. ZOLOFT [Suspect]
     Indication: DRUG USE FOR UNKNOWN INDICATION
     Dosage: PO
     Route: 048
     Dates: start: 20060615, end: 20060903

REACTIONS (5)
  - CHOLESTASIS [None]
  - INTERSTITIAL LUNG DISEASE [None]
  - PANCYTOPENIA [None]
  - RASH PAPULAR [None]
  - RASH PRURITIC [None]
